FAERS Safety Report 7908605-8 (Version None)
Quarter: 2011Q4

REPORT INFORMATION
  Report Type: 
  Country: None (occurrence: None)
  Receive Date: 20111111
  Receipt Date: 20111107
  Transmission Date: 20120403
  Serious: Yes (Other)
  Sender: FDA-Public Use
  Company Number: JP-PFIZER INC-2011234801

PATIENT
  Age: 55 Year
  Sex: Female
  Weight: 60 kg

DRUGS (8)
  1. ENALAPRIL MALEATE [Concomitant]
     Dosage: 5 MG, DAILY
     Route: 048
     Dates: start: 20110714
  2. BISOPROLOL FUMARATE [Concomitant]
     Dosage: 5 MG, DAILY
     Route: 048
     Dates: start: 20110714
  3. MEDROL [Concomitant]
     Dosage: 4 MG, DAILY
     Route: 048
     Dates: start: 20110714
  4. BISOLVON [Concomitant]
     Dosage: 20 MG, DAILY
     Route: 048
     Dates: start: 20110714
  5. LIPITOR [Suspect]
     Indication: DYSLIPIDAEMIA
     Dosage: 10 MG, 1X/DAY
     Route: 048
     Dates: start: 20110704, end: 20111001
  6. LANSOPRAZOLE [Concomitant]
     Dosage: 30 MG, DAILY
     Route: 048
     Dates: start: 20110714
  7. VANCOMYCIN [Suspect]
     Indication: STAPHYLOCOCCAL INFECTION
     Dosage: 1 G, 2X/DAY
     Route: 042
  8. CEFAZOLIN SODIUM [Concomitant]
     Dosage: 3 MG, DAILY
     Route: 048
     Dates: start: 20110714

REACTIONS (8)
  - ASPARTATE AMINOTRANSFERASE INCREASED [None]
  - ALANINE AMINOTRANSFERASE INCREASED [None]
  - BLOOD CREATINE PHOSPHOKINASE INCREASED [None]
  - ERYTHEMA [None]
  - HYPERTHERMIA MALIGNANT [None]
  - RENAL IMPAIRMENT [None]
  - RHABDOMYOLYSIS [None]
  - BLOOD LACTATE DEHYDROGENASE INCREASED [None]
